FAERS Safety Report 10560073 (Version 4)
Quarter: 2015Q2

REPORT INFORMATION
  Report Type: Spontaneous
  Country: US (occurrence: US)
  Receive Date: 20141103
  Receipt Date: 20150611
  Transmission Date: 20150821
  Serious: Yes (Death, Hospitalization, Other)
  Sender: FDA-Public Use
  Company Number: US-MERCK-1410USA016717

PATIENT
  Sex: Male
  Weight: 90.7 kg

DRUGS (2)
  1. BYETTA [Suspect]
     Active Substance: EXENATIDE
     Indication: TYPE 2 DIABETES MELLITUS
     Dosage: 5-10MCG, QD
     Dates: start: 20101123, end: 20110908
  2. JANUVIA [Suspect]
     Active Substance: SITAGLIPTIN PHOSPHATE
     Indication: TYPE 2 DIABETES MELLITUS
     Dosage: 100 MG, QD
     Route: 048
     Dates: start: 20091015, end: 20101116

REACTIONS (31)
  - Spinal osteoarthritis [Unknown]
  - Renal cyst [Unknown]
  - Glaucoma [Unknown]
  - Benign prostatic hyperplasia [Unknown]
  - International normalised ratio increased [Recovered/Resolved]
  - Adrenal mass [Unknown]
  - Metastases to peritoneum [Unknown]
  - Death [Fatal]
  - Hyperlipidaemia [Unknown]
  - Bladder disorder [Unknown]
  - Spondylolysis [Unknown]
  - Metastases to abdominal wall [Unknown]
  - Metastases to reproductive organ [Unknown]
  - Spinal ligament ossification [Unknown]
  - Constipation [Unknown]
  - Rash [Unknown]
  - Metastases to soft tissue [Unknown]
  - Abdominal hernia [Unknown]
  - Drug interaction [Unknown]
  - Spondylolisthesis [Unknown]
  - Diaphragmatic disorder [Unknown]
  - Obstruction gastric [Unknown]
  - Metastases to lymph nodes [Unknown]
  - Asthma [Unknown]
  - Gastrooesophageal reflux disease [Unknown]
  - Pancreatic carcinoma metastatic [Unknown]
  - Metastases to liver [Unknown]
  - Pulmonary mass [Unknown]
  - Cholelithiasis [Unknown]
  - Lipoma [Unknown]
  - Gastrointestinal disorder [Unknown]

NARRATIVE: CASE EVENT DATE: 201203
